FAERS Safety Report 4892528-5 (Version None)
Quarter: 2006Q1

REPORT INFORMATION
  Report Type: 
  Country: None (occurrence: None)
  Receive Date: 20060126
  Receipt Date: 20060117
  Transmission Date: 20060701
  Serious: Yes (Hospitalization, Other)
  Sender: FDA-Public Use
  Company Number: DE-BRISTOL-MYERS SQUIBB COMPANY-13251715

PATIENT
  Age: 38 Year
  Sex: Female
  Weight: 53 kg

DRUGS (8)
  1. PACLITAXEL [Suspect]
     Indication: BREAST CANCER
     Route: 042
     Dates: start: 20051024
  2. EPIRUBICIN [Suspect]
     Indication: BREAST CANCER
     Route: 042
     Dates: start: 20050829, end: 20051010
  3. EPOGEN [Concomitant]
     Route: 058
     Dates: start: 20050829
  4. GRANISETRON [Concomitant]
     Route: 042
     Dates: start: 20050829
  5. GRANISETRON [Concomitant]
     Route: 048
     Dates: start: 20050829
  6. LEUKINE [Concomitant]
     Route: 058
     Dates: start: 20050830
  7. CLEMASTINE [Concomitant]
     Route: 042
     Dates: start: 20051024
  8. RANITIDINE [Concomitant]
     Route: 042
     Dates: start: 20051024

REACTIONS (1)
  - PNEUMOTHORAX [None]
